FAERS Safety Report 8822823 (Version 1)
Quarter: 2012Q4

REPORT INFORMATION
  Report Type: 
  Country: FR (occurrence: FR)
  Receive Date: 20121003
  Receipt Date: 20121003
  Transmission Date: 20130627
  Serious: Yes (Hospitalization)
  Sender: FDA-Public Use
  Company Number: FR-ASTRAZENECA-2012SE75060

PATIENT
  Age: 76 Year
  Sex: Male

DRUGS (9)
  1. INEXIUM [Suspect]
     Dosage: Daily
     Route: 048
     Dates: start: 20110530, end: 20110812
  2. INEXIUM [Suspect]
     Dosage: Daily
     Route: 048
  3. CORDARONE [Suspect]
     Route: 048
     Dates: end: 20110805
  4. BURINEX [Concomitant]
     Dates: end: 20110726
  5. BURINEX [Concomitant]
  6. LIPANTHYL [Concomitant]
     Dates: end: 20110727
  7. LIPANTHYL [Concomitant]
  8. NOVONORM [Concomitant]
     Dates: end: 20110728
  9. NOVONORM [Concomitant]

REACTIONS (6)
  - Polyarthritis [Unknown]
  - Exfoliative rash [Recovered/Resolved]
  - Arthralgia [Recovered/Resolved]
  - Transaminases increased [Recovered/Resolved]
  - Eosinophilia [Unknown]
  - Thrombocytopenia [Unknown]
